FAERS Safety Report 7031950-8 (Version None)
Quarter: 2010Q4

REPORT INFORMATION
  Report Type: 
  Country: None (occurrence: None)
  Receive Date: 20101007
  Receipt Date: 20100930
  Transmission Date: 20110411
  Serious: Yes (Life-Threatening, Hospitalization, Other)
  Sender: FDA-Public Use
  Company Number: US-ELI_LILLY_AND_COMPANY-US201010000037

PATIENT
  Sex: Female

DRUGS (4)
  1. HUMULIN R [Suspect]
     Indication: DIABETES MELLITUS
     Dosage: UNK, AS NEEDED
  2. LEVEMIR [Concomitant]
  3. LANTUS [Concomitant]
     Dosage: UNK, UNK
  4. PLAVIX [Concomitant]

REACTIONS (5)
  - INTENTIONAL DRUG MISUSE [None]
  - MACULAR DEGENERATION [None]
  - MYOCARDIAL INFARCTION [None]
  - SEPSIS [None]
  - VISUAL IMPAIRMENT [None]
